FAERS Safety Report 5514675-7 (Version None)
Quarter: 2007Q4

REPORT INFORMATION
  Report Type: 
  Country: None (occurrence: None)
  Receive Date: 20071113
  Receipt Date: 20071030
  Transmission Date: 20080405
  Serious: Yes (Death)
  Sender: FDA-Public Use
  Company Number: FR-PFIZER INC-2007091687

PATIENT
  Sex: Male

DRUGS (9)
  1. ATARAX [Suspect]
  2. KETOPROFEN [Suspect]
  3. PANTOPRAZOLE SODIUM [Suspect]
  4. AMYLASE [Suspect]
  5. ACETYLCYSTEINE [Suspect]
  6. VALACYCLOVIR HCL [Suspect]
  7. BECLOMETHASONE DIPROPIONATE [Suspect]
  8. PARACETAMOL [Suspect]
  9. CHLOROQUINE PHOSPHATE [Concomitant]

REACTIONS (2)
  - COMPLETED SUICIDE [None]
  - GUN SHOT WOUND [None]
